FAERS Safety Report 9088164 (Version 1)
Quarter: 2013Q1

REPORT INFORMATION
  Report Type: Report from Study
  Country: ES (occurrence: ES)
  Receive Date: 20130201
  Receipt Date: 20130201
  Transmission Date: 20140127
  Serious: Yes (Hospitalization)
  Sender: FDA-Public Use
  Company Number: ES-ABBOTT-13P-144-1042908-00

PATIENT
  Age: 78 Year
  Sex: Female

DRUGS (8)
  1. VALPROATE SODIUM [Suspect]
     Indication: STATUS EPILEPTICUS
     Dosage: 500 MILLIGRAM TWICE A DAY
     Route: 048
     Dates: start: 20060619, end: 20060706
  2. ALDACTONE [Concomitant]
     Indication: PRODUCT USED FOR UNKNOWN INDICATION
  3. IRBESARTAN [Concomitant]
     Indication: PRODUCT USED FOR UNKNOWN INDICATION
  4. OMEPRAZOLE [Concomitant]
     Indication: PRODUCT USED FOR UNKNOWN INDICATION
  5. SEGURIL [Concomitant]
     Indication: PRODUCT USED FOR UNKNOWN INDICATION
  6. DIGOXIN [Concomitant]
     Indication: PRODUCT USED FOR UNKNOWN INDICATION
  7. AAS [Concomitant]
     Indication: PRODUCT USED FOR UNKNOWN INDICATION
  8. NATECAL D [Concomitant]
     Indication: PRODUCT USED FOR UNKNOWN INDICATION

REACTIONS (3)
  - Acute hepatic failure [Recovered/Resolved]
  - Jaundice [Unknown]
  - Hepatic encephalopathy [Recovered/Resolved]
